FAERS Safety Report 6524004-8 (Version None)
Quarter: 2009Q4

REPORT INFORMATION
  Report Type: 
  Country: None (occurrence: None)
  Receive Date: 20091231
  Receipt Date: 20091221
  Transmission Date: 20100525
  Serious: Yes (Hospitalization, Other)
  Sender: FDA-Public Use
  Company Number: CA-ABBOTT-09P-028-0615259-00

PATIENT
  Sex: Male
  Weight: 49.94 kg

DRUGS (5)
  1. HUMIRA [Suspect]
     Indication: COLITIS ULCERATIVE
     Dosage: SECOND LOADING DOSE
     Route: 058
     Dates: start: 20091123
  2. PURINETHOL [Concomitant]
     Indication: DRUG USE FOR UNKNOWN INDICATION
  3. SALOFALK [Concomitant]
     Indication: DRUG USE FOR UNKNOWN INDICATION
  4. CALCIUM [Concomitant]
     Indication: DRUG USE FOR UNKNOWN INDICATION
  5. ACTONEL [Concomitant]
     Indication: DRUG USE FOR UNKNOWN INDICATION

REACTIONS (10)
  - COLITIS ULCERATIVE [None]
  - FREQUENT BOWEL MOVEMENTS [None]
  - GASTROINTESTINAL INFECTION [None]
  - GASTROINTESTINAL OEDEMA [None]
  - GASTROINTESTINAL TRACT MUCOSAL DISCOLOURATION [None]
  - HAEMATOCHEZIA [None]
  - HYPOAESTHESIA [None]
  - NERVE COMPRESSION [None]
  - SENSORY DISTURBANCE [None]
  - WEIGHT DECREASED [None]
